FAERS Safety Report 12116875 (Version 3)
Quarter: 2016Q1

REPORT INFORMATION
  Report Type: Spontaneous
  Country: US (occurrence: US)
  Receive Date: 20160225
  Receipt Date: 20160330
  Transmission Date: 20160526
  Serious: Yes (Other)
  Sender: FDA-Public Use
  Company Number: US-TEVA-636492USA

PATIENT
  Age: 49 Year
  Sex: Female

DRUGS (1)
  1. ZECUITY [Suspect]
     Active Substance: SUMATRIPTAN SUCCINATE
     Route: 062
     Dates: start: 20160215, end: 20160215

REACTIONS (4)
  - Application site erythema [Recovering/Resolving]
  - Drug ineffective [Unknown]
  - Sunburn [Recovered/Resolved with Sequelae]
  - Application site rash [Recovered/Resolved with Sequelae]

NARRATIVE: CASE EVENT DATE: 20160215
